FAERS Safety Report 6031194-2 (Version None)
Quarter: 2009Q1

REPORT INFORMATION
  Report Type: 
  Country: None (occurrence: None)
  Receive Date: 20090108
  Receipt Date: 20080403
  Transmission Date: 20090719
  Serious: Yes (Hospitalization)
  Sender: FDA-Public Use
  Company Number: GB-BAYER-200816784GPV

PATIENT
  Age: 26 Year
  Sex: Female

DRUGS (7)
  1. LEPIRUDIN [Suspect]
     Indication: ANTICOAGULANT THERAPY
     Route: 065
  2. EPHEDRINE HCL 1PC SOL [Concomitant]
     Indication: DRUG USE FOR UNKNOWN INDICATION
     Route: 065
  3. ENOXAPARIN SODIUM [Concomitant]
     Indication: DRUG USE FOR UNKNOWN INDICATION
     Dosage: TOTAL DAILY DOSE: 2 MG/KG
     Route: 058
  4. AMLODIPINE [Concomitant]
     Indication: DRUG USE FOR UNKNOWN INDICATION
     Route: 065
  5. EPIDURAL ANAESTHESIA [Concomitant]
     Indication: DRUG USE FOR UNKNOWN INDICATION
     Route: 008
  6. EPOPROSTENOL [Concomitant]
     Indication: PULMONARY ARTERIAL HYPERTENSION
     Route: 065
  7. WARFARIN SODIUM [Concomitant]
     Indication: PULMONARY ARTERIAL HYPERTENSION
     Route: 065

REACTIONS (2)
  - INTRA-ABDOMINAL HAEMATOMA [None]
  - PELVIC HAEMATOMA [None]
